FAERS Safety Report 11880319 (Version 3)
Quarter: 2016Q1

REPORT INFORMATION
  Report Type: Spontaneous
  Country: BG (occurrence: BG)
  Receive Date: 20151230
  Receipt Date: 20160120
  Transmission Date: 20160526
  Serious: Yes (Hospitalization, Other)
  Sender: FDA-Public Use
  Company Number: BG-JNJFOC-20151218177

PATIENT
  Age: 23 Year
  Sex: Female

DRUGS (2)
  1. SIMPONI [Suspect]
     Active Substance: GOLIMUMAB
     Indication: COLITIS ULCERATIVE
     Dosage: 6 MONTHS AGO
     Route: 058
     Dates: start: 2015
  2. SIMPONI [Suspect]
     Active Substance: GOLIMUMAB
     Indication: COLITIS ULCERATIVE
     Route: 058

REACTIONS (3)
  - Hospitalisation [Unknown]
  - Depression [Recovering/Resolving]
  - Treatment noncompliance [Unknown]
